FAERS Safety Report 14404672 (Version 2)
Quarter: 2018Q1

REPORT INFORMATION
  Report Type: Spontaneous
  Country: JP (occurrence: JP)
  Receive Date: 20180118
  Receipt Date: 20180206
  Transmission Date: 20180509
  Serious: Yes (Hospitalization)
  Sender: FDA-Public Use
  Company Number: JP-UCBSA-2018001431

PATIENT
  Age: 49 Year
  Sex: Female
  Weight: 75 kg

DRUGS (9)
  1. VIMPAT [Suspect]
     Active Substance: LACOSAMIDE
     Indication: LENNOX-GASTAUT SYNDROME
     Dosage: 50 MG, 2X/DAY (BID)
     Route: 048
     Dates: start: 2017
  2. TEGRETOL [Concomitant]
     Active Substance: CARBAMAZEPINE
     Indication: PRODUCT USED FOR UNKNOWN INDICATION
  3. E KEPPRA [Concomitant]
     Active Substance: LEVETIRACETAM
     Indication: PRODUCT USED FOR UNKNOWN INDICATION
     Dosage: 1000 MG, 2X/DAY (BID)
  4. RINDERON V [Suspect]
     Active Substance: BETAMETHASONE VALERATE
     Indication: PRODUCT USED FOR UNKNOWN INDICATION
     Route: 061
  5. SODIUM VALPROATE [Concomitant]
     Active Substance: VALPROATE SODIUM
  6. LOCOID [Suspect]
     Active Substance: HYDROCORTISONE BUTYRATE
     Indication: PRODUCT USED FOR UNKNOWN INDICATION
     Dosage: UNK
     Route: 061
  7. HYDANTOL [Concomitant]
     Active Substance: PHENYTOIN SODIUM
     Indication: PRODUCT USED FOR UNKNOWN INDICATION
  8. RIVOTRIL [Concomitant]
     Active Substance: CLONAZEPAM
     Indication: PRODUCT USED FOR UNKNOWN INDICATION
  9. ZONISAMIDE. [Concomitant]
     Active Substance: ZONISAMIDE
     Indication: PRODUCT USED FOR UNKNOWN INDICATION

REACTIONS (1)
  - Drug reaction with eosinophilia and systemic symptoms [Recovering/Resolving]

NARRATIVE: CASE EVENT DATE: 20180104
